FAERS Safety Report 24177128 (Version 1)
Quarter: 2024Q3

REPORT INFORMATION
  Report Type: Spontaneous
  Country: US (occurrence: US)
  Receive Date: 20240806
  Receipt Date: 20240806
  Transmission Date: 20241017
  Serious: Yes (Other)
  Sender: AMNEAL
  Company Number: US-AMNEAL-2024-AMRX-00708

PATIENT
  Age: 49 Year
  Sex: Male

DRUGS (1)
  1. BACLOFEN [Suspect]
     Active Substance: BACLOFEN
     Indication: Product used for unknown indication
     Dosage: 49 MICROGRAM (500 MCG/ML), DAILY
     Route: 037

REACTIONS (2)
  - Muscle spasticity [Recovered/Resolved]
  - Device leakage [Unknown]

NARRATIVE: CASE EVENT DATE: 20240227
